FAERS Safety Report 6449814-7 (Version None)
Quarter: 2009Q4

REPORT INFORMATION
  Report Type: 
  Country: None (occurrence: None)
  Receive Date: 20091120
  Receipt Date: 20090316
  Transmission Date: 20100525
  Serious: Yes (Other)
  Sender: FDA-Public Use
  Company Number: US-AMGEN-QUU335708

PATIENT
  Sex: Female
  Weight: 116.5 kg

DRUGS (12)
  1. ENBREL [Suspect]
     Indication: PSORIATIC ARTHROPATHY
     Route: 058
     Dates: end: 20081219
  2. ENBREL [Suspect]
     Indication: PSORIASIS
  3. FOLIC ACID [Concomitant]
  4. ACTONEL [Concomitant]
  5. DOVONEX [Concomitant]
  6. ACTOS [Concomitant]
  7. METFORMIN HCL [Concomitant]
  8. LISINOPRIL [Concomitant]
  9. DETROL [Concomitant]
  10. ALENDRONATE SODIUM [Concomitant]
  11. CALCIUM [Concomitant]
  12. VITAMIN D [Concomitant]

REACTIONS (6)
  - ASTHMA [None]
  - INCONTINENCE [None]
  - LUNG CANCER METASTATIC [None]
  - OEDEMA PERIPHERAL [None]
  - PSORIASIS [None]
  - PSORIATIC ARTHROPATHY [None]
